FAERS Safety Report 21628818 (Version 3)
Quarter: 2024Q4

REPORT INFORMATION
  Report Type: Report from Study
  Country: CA (occurrence: CA)
  Receive Date: 20221122
  Receipt Date: 20241115
  Transmission Date: 20250115
  Serious: Yes (Hospitalization, Other)
  Sender: TAKEDA
  Company Number: CA-TAKEDA-2022TUS031412

PATIENT
  Sex: Male

DRUGS (4)
  1. HUMAN IMMUNOGLOBULIN G [Suspect]
     Active Substance: HUMAN IMMUNOGLOBULIN G
     Indication: Secondary immunodeficiency
     Dosage: 8 GRAM, 1/WEEK
     Dates: start: 20220411
  2. HUMAN IMMUNOGLOBULIN G [Suspect]
     Active Substance: HUMAN IMMUNOGLOBULIN G
     Dosage: 8 GRAM, 1/WEEK
  3. HUMAN IMMUNOGLOBULIN G [Suspect]
     Active Substance: HUMAN IMMUNOGLOBULIN G
     Dosage: 10 GRAM, 1/WEEK
  4. HUMAN IMMUNOGLOBULIN G [Suspect]
     Active Substance: HUMAN IMMUNOGLOBULIN G
     Dosage: 10 GRAM, 1/WEEK

REACTIONS (2)
  - Pneumonia [Not Recovered/Not Resolved]
  - COVID-19 [Not Recovered/Not Resolved]

NARRATIVE: CASE EVENT DATE: 20220101
